FAERS Safety Report 5738064-5 (Version None)
Quarter: 2008Q2

REPORT INFORMATION
  Report Type: 
  Country: None (occurrence: None)
  Receive Date: 20080509
  Receipt Date: 20080410
  Transmission Date: 20081010
  Serious: Yes (Death, Life-Threatening)
  Sender: FDA-Public Use
  Company Number: CERZ-1000207

PATIENT
  Age: 37 Year
  Sex: Female
  Weight: 36.8 kg

DRUGS (1)
  1. CEREZYME [Suspect]
     Indication: GAUCHER'S DISEASE
     Dosage: 60 MG/KG, Q2W, INTRAVENOUS
     Route: 042
     Dates: start: 20020101, end: 20080429

REACTIONS (11)
  - CHRONIC HEPATITIS [None]
  - EPISTAXIS [None]
  - GASTROINTESTINAL HAEMORRHAGE [None]
  - HAEMORRHAGIC ANAEMIA [None]
  - HEPATIC CANCER METASTATIC [None]
  - HYPOALBUMINAEMIA [None]
  - REFUSAL OF TREATMENT BY PATIENT [None]
  - SEPSIS [None]
  - SPINAL COMPRESSION FRACTURE [None]
  - VIRAL HEPATITIS CARRIER [None]
  - WOUND INFECTION BACTERIAL [None]
